FAERS Safety Report 13611641 (Version 1)
Quarter: 2017Q2

REPORT INFORMATION
  Report Type: Spontaneous
  Country: FR (occurrence: FR)
  Receive Date: 20170605
  Receipt Date: 20170605
  Transmission Date: 20170830
  Serious: Yes (Hospitalization, Other)
  Sender: FDA-Public Use
  Company Number: FR-JUBILANT CADISTA PHARMACEUTICALS-2017JUB00163

PATIENT
  Age: 27 Year
  Sex: Female

DRUGS (8)
  1. TERIFLUNOMIDE [Concomitant]
     Active Substance: TERIFLUNOMIDE
     Dosage: UNK
     Route: 065
     Dates: start: 2014, end: 201509
  2. METHYLPREDNISOLONE. [Suspect]
     Active Substance: METHYLPREDNISOLONE
     Indication: MULTIPLE SCLEROSIS
     Dosage: 3 G, UNK
     Route: 042
     Dates: start: 2004
  3. METHYLPREDNISOLONE. [Suspect]
     Active Substance: METHYLPREDNISOLONE
     Dosage: 3 G, 2 PULSES
     Route: 042
     Dates: start: 2005, end: 2005
  4. BETA-1A INTERFERON [Concomitant]
     Dosage: UNK
     Route: 065
     Dates: start: 2005, end: 2005
  5. FINGOLIMOD [Concomitant]
     Active Substance: FINGOLIMOD
     Route: 065
  6. METHYLPREDNISOLONE. [Suspect]
     Active Substance: METHYLPREDNISOLONE
     Dosage: 3 G, UNK
     Route: 042
     Dates: start: 2015, end: 2015
  7. GLATIRAMER ACETATE. [Concomitant]
     Active Substance: GLATIRAMER ACETATE
     Dosage: UNK
     Route: 065
     Dates: start: 2007, end: 2010
  8. AZATHIOPRINE. [Concomitant]
     Active Substance: AZATHIOPRINE
     Dosage: UNK
     Route: 065
     Dates: start: 2006, end: 2007

REACTIONS (1)
  - Drug-induced liver injury [Recovered/Resolved]

NARRATIVE: CASE EVENT DATE: 2004
